FAERS Safety Report 20130268 (Version 7)
Quarter: 2025Q1

REPORT INFORMATION
  Report Type: Spontaneous
  Country: CA (occurrence: CA)
  Receive Date: 20211130
  Receipt Date: 20250131
  Transmission Date: 20250408
  Serious: Yes (Death, Hospitalization, Other)
  Sender: AMGEN
  Company Number: CA-AMGEN-CANSP2021186984

PATIENT
  Age: 56 Year
  Sex: Female
  Weight: 70 kg

DRUGS (176)
  1. ENBREL [Suspect]
     Active Substance: ETANERCEPT
     Indication: Rheumatoid arthritis
     Dosage: 50 MILLIGRAM, QWK
     Route: 058
  2. ENBREL [Suspect]
     Active Substance: ETANERCEPT
     Dosage: 20 MILLIGRAM, QWK
     Route: 058
  3. ENBREL [Suspect]
     Active Substance: ETANERCEPT
     Dosage: 20 MILLIGRAM, QD
     Route: 058
  4. ENBREL [Suspect]
     Active Substance: ETANERCEPT
     Route: 058
  5. ADALIMUMAB [Suspect]
     Active Substance: ADALIMUMAB
     Indication: Product used for unknown indication
     Route: 058
  6. ADALIMUMAB [Suspect]
     Active Substance: ADALIMUMAB
     Route: 048
  7. ADALIMUMAB [Suspect]
     Active Substance: ADALIMUMAB
     Route: 040
  8. OTEZLA [Suspect]
     Active Substance: APREMILAST
     Indication: Product used for unknown indication
     Dosage: 6 MILLIGRAM, QD
     Route: 065
  9. OTEZLA [Suspect]
     Active Substance: APREMILAST
     Route: 048
  10. OTEZLA [Suspect]
     Active Substance: APREMILAST
     Dosage: 6 MILLIGRAM, QD
     Route: 048
  11. OTEZLA [Suspect]
     Active Substance: APREMILAST
     Route: 065
  12. RITUXIMAB [Suspect]
     Active Substance: RITUXIMAB
     Indication: Rheumatoid arthritis
     Route: 065
  13. RITUXIMAB [Suspect]
     Active Substance: RITUXIMAB
     Route: 042
  14. RITUXIMAB [Suspect]
     Active Substance: RITUXIMAB
     Route: 041
  15. ACTEMRA [Suspect]
     Active Substance: TOCILIZUMAB
     Indication: Rheumatoid arthritis
     Route: 065
  16. ARAVA [Suspect]
     Active Substance: LEFLUNOMIDE
     Indication: Rheumatoid arthritis
     Route: 048
  17. CETIRIZINE HYDROCHLORIDE [Suspect]
     Active Substance: CETIRIZINE HYDROCHLORIDE
     Indication: Rheumatoid arthritis
     Dosage: 10 MILLIGRAM, QD
     Route: 048
  18. CETIRIZINE HYDROCHLORIDE [Suspect]
     Active Substance: CETIRIZINE HYDROCHLORIDE
     Route: 048
  19. CETIRIZINE HYDROCHLORIDE [Suspect]
     Active Substance: CETIRIZINE HYDROCHLORIDE
     Route: 065
  20. CETIRIZINE HYDROCHLORIDE [Suspect]
     Active Substance: CETIRIZINE HYDROCHLORIDE
     Route: 065
  21. CIMZIA [Suspect]
     Active Substance: CERTOLIZUMAB PEGOL
     Indication: Rheumatoid arthritis
     Route: 058
  22. CIMZIA [Suspect]
     Active Substance: CERTOLIZUMAB PEGOL
     Dosage: 1 DOSAGE FORM, QD
     Route: 058
  23. CIMZIA [Suspect]
     Active Substance: CERTOLIZUMAB PEGOL
     Route: 058
  24. CORTISONE ACETATE [Suspect]
     Active Substance: CORTISONE ACETATE
     Indication: Rheumatoid arthritis
     Route: 065
  25. CORTISONE ACETATE [Suspect]
     Active Substance: CORTISONE ACETATE
     Route: 058
  26. COSENTYX [Suspect]
     Active Substance: SECUKINUMAB
     Indication: Psoriatic arthropathy
     Route: 065
  27. FOLIC ACID [Suspect]
     Active Substance: FOLIC ACID
     Indication: Rheumatoid arthritis
     Dosage: 1 MILLIGRAM, QD
     Route: 065
  28. FOLIC ACID [Suspect]
     Active Substance: FOLIC ACID
     Route: 065
  29. FOLIC ACID [Suspect]
     Active Substance: FOLIC ACID
     Route: 065
  30. FOLIC ACID [Suspect]
     Active Substance: FOLIC ACID
     Route: 065
  31. FOSAMAX [Suspect]
     Active Substance: ALENDRONATE SODIUM
     Indication: Rheumatoid arthritis
     Route: 065
  32. FOSAMAX [Suspect]
     Active Substance: ALENDRONATE SODIUM
     Route: 058
  33. HUMIRA [Suspect]
     Active Substance: ADALIMUMAB
     Indication: Rheumatoid arthritis
     Route: 058
  34. HUMIRA [Suspect]
     Active Substance: ADALIMUMAB
     Route: 065
  35. HUMIRA [Suspect]
     Active Substance: ADALIMUMAB
     Route: 058
  36. HUMIRA [Suspect]
     Active Substance: ADALIMUMAB
     Route: 058
  37. HYDROXYCHLOROQUINE SULFATE [Suspect]
     Active Substance: HYDROXYCHLOROQUINE SULFATE
     Indication: Rheumatoid arthritis
     Dosage: 400 MILLIGRAM, QD
     Route: 065
  38. HYDROXYCHLOROQUINE SULFATE [Suspect]
     Active Substance: HYDROXYCHLOROQUINE SULFATE
     Route: 065
  39. LEFLUNOMIDE [Suspect]
     Active Substance: LEFLUNOMIDE
     Indication: Rheumatoid arthritis
     Route: 065
  40. METHOTREXATE [Suspect]
     Active Substance: METHOTREXATE
     Indication: Rheumatoid arthritis
     Route: 058
  41. METHOTREXATE [Suspect]
     Active Substance: METHOTREXATE
     Dosage: 20 MILLIGRAM, QD
     Route: 065
  42. METHOTREXATE [Suspect]
     Active Substance: METHOTREXATE
     Dosage: 1 EVERY 1 WEEK
     Route: 058
  43. METHOTREXATE [Suspect]
     Active Substance: METHOTREXATE
     Dosage: 25 MILLIGRAM, 1 EVERY 1 WEEK
     Route: 058
  44. METHOTREXATE [Suspect]
     Active Substance: METHOTREXATE
     Dosage: 20 MILLIGRAM, QWK
     Route: 058
  45. METHOTREXATE [Suspect]
     Active Substance: METHOTREXATE
     Route: 048
  46. METHOTREXATE [Suspect]
     Active Substance: METHOTREXATE
     Route: 048
  47. METHOTREXATE [Suspect]
     Active Substance: METHOTREXATE
     Dosage: 15 MILLIGRAM, QD
     Route: 048
  48. METHOTREXATE [Suspect]
     Active Substance: METHOTREXATE
     Route: 048
  49. ORENCIA [Suspect]
     Active Substance: ABATACEPT
     Indication: Rheumatoid arthritis
     Route: 065
  50. ORENCIA [Suspect]
     Active Substance: ABATACEPT
     Route: 042
  51. ORENCIA [Suspect]
     Active Substance: ABATACEPT
     Route: 058
  52. ORENCIA [Suspect]
     Active Substance: ABATACEPT
     Route: 058
  53. ORENCIA [Suspect]
     Active Substance: ABATACEPT
     Route: 058
  54. ORENCIA [Suspect]
     Active Substance: ABATACEPT
     Route: 058
  55. ORENCIA [Suspect]
     Active Substance: ABATACEPT
     Dosage: 125 MILLIGRAM, QD
     Route: 058
  56. ORENCIA [Suspect]
     Active Substance: ABATACEPT
     Dosage: 125 MILLIGRAM, QWK
     Route: 058
  57. ORENCIA [Suspect]
     Active Substance: ABATACEPT
     Dosage: 18 MILLIGRAM, QD
     Route: 058
  58. ORENCIA [Suspect]
     Active Substance: ABATACEPT
     Route: 058
  59. ORENCIA [Suspect]
     Active Substance: ABATACEPT
     Dosage: 17.88 MILLIGRAM, QD
     Route: 058
  60. ORENCIA [Suspect]
     Active Substance: ABATACEPT
     Dosage: 17.86 MILLIGRAM, QD
     Route: 058
  61. PHTHALYLSULFATHIAZOLE [Suspect]
     Active Substance: PHTHALYLSULFATHIAZOLE
     Indication: Rheumatoid arthritis
     Route: 065
  62. PLAQUENIL [Suspect]
     Active Substance: HYDROXYCHLOROQUINE SULFATE
     Indication: Product used for unknown indication
     Route: 065
  63. PREDNISONE [Suspect]
     Active Substance: PREDNISONE
     Indication: Rheumatoid arthritis
     Route: 042
  64. PREDNISONE [Suspect]
     Active Substance: PREDNISONE
     Route: 048
  65. PREDNISONE [Suspect]
     Active Substance: PREDNISONE
     Route: 048
  66. PREDNISONE [Suspect]
     Active Substance: PREDNISONE
     Route: 048
  67. PREDNISONE [Suspect]
     Active Substance: PREDNISONE
     Route: 048
  68. PREDNISONE [Suspect]
     Active Substance: PREDNISONE
     Route: 048
  69. PSEUDOEPHEDRINE HYDROCHLORIDE [Suspect]
     Active Substance: PSEUDOEPHEDRINE HYDROCHLORIDE
     Indication: Rheumatoid arthritis
     Route: 065
  70. CETIRIZINE HYDROCHLORIDE [Suspect]
     Active Substance: CETIRIZINE HYDROCHLORIDE
     Indication: Rheumatoid arthritis
     Route: 065
  71. REMICADE [Suspect]
     Active Substance: INFLIXIMAB
     Indication: Rheumatoid arthritis
     Route: 042
  72. REMICADE [Suspect]
     Active Substance: INFLIXIMAB
     Route: 040
  73. REMICADE [Suspect]
     Active Substance: INFLIXIMAB
     Route: 042
  74. REMICADE [Suspect]
     Active Substance: INFLIXIMAB
     Route: 042
  75. REMICADE [Suspect]
     Active Substance: INFLIXIMAB
     Route: 042
  76. SIMPONI [Suspect]
     Active Substance: GOLIMUMAB
     Indication: Rheumatoid arthritis
     Route: 058
  77. SIMPONI [Suspect]
     Active Substance: GOLIMUMAB
     Route: 065
  78. SULFASALAZINE [Suspect]
     Active Substance: SULFASALAZINE
     Indication: Rheumatoid arthritis
     Route: 065
  79. SULFASALAZINE [Suspect]
     Active Substance: SULFASALAZINE
     Route: 048
  80. SULFASALAZINE [Suspect]
     Active Substance: SULFASALAZINE
     Route: 058
  81. SULFASALAZINE [Suspect]
     Active Substance: SULFASALAZINE
     Route: 058
  82. SULFASALAZINE [Suspect]
     Active Substance: SULFASALAZINE
     Route: 048
  83. SULFASALAZINE [Suspect]
     Active Substance: SULFASALAZINE
     Route: 058
  84. SULFASALAZINE [Suspect]
     Active Substance: SULFASALAZINE
     Route: 058
  85. SULFASALAZINE [Suspect]
     Active Substance: SULFASALAZINE
     Route: 058
  86. SULFASALAZINE [Suspect]
     Active Substance: SULFASALAZINE
     Route: 058
  87. ERELZI [Suspect]
     Active Substance: ETANERCEPT-SZZS
     Indication: Product used for unknown indication
     Route: 058
  88. TOCILIZUMAB [Suspect]
     Active Substance: TOCILIZUMAB
     Indication: Product used for unknown indication
     Route: 065
  89. TOCILIZUMAB [Suspect]
     Active Substance: TOCILIZUMAB
     Route: 048
  90. TOCILIZUMAB [Suspect]
     Active Substance: TOCILIZUMAB
     Dosage: 752 MILLIGRAM, QWK
     Route: 065
  91. TOCILIZUMAB [Suspect]
     Active Substance: TOCILIZUMAB
     Route: 058
  92. TOCILIZUMAB [Suspect]
     Active Substance: TOCILIZUMAB
     Route: 040
  93. TOCILIZUMAB [Suspect]
     Active Substance: TOCILIZUMAB
     Route: 058
  94. TOCILIZUMAB [Suspect]
     Active Substance: TOCILIZUMAB
     Route: 040
  95. PREDNISONE [Suspect]
     Active Substance: PREDNISONE
     Indication: Rheumatoid arthritis
     Route: 065
  96. CETIRIZINE HYDROCHLORIDE AND PSEUDOEPHEDRINE HYDROCHLORIDE [Suspect]
     Active Substance: CETIRIZINE HYDROCHLORIDE\PSEUDOEPHEDRINE HYDROCHLORIDE
     Indication: Rheumatoid arthritis
     Route: 065
  97. DESOXIMETASONE [Suspect]
     Active Substance: DESOXIMETASONE
     Indication: Rheumatoid arthritis
     Route: 048
  98. DESOXIMETASONE [Suspect]
     Active Substance: DESOXIMETASONE
     Route: 058
  99. DESOXIMETASONE [Suspect]
     Active Substance: DESOXIMETASONE
     Route: 058
  100. DESOXIMETASONE [Suspect]
     Active Substance: DESOXIMETASONE
     Route: 048
  101. ALENDRONATE SODIUM [Suspect]
     Active Substance: ALENDRONATE SODIUM
     Indication: Rheumatoid arthritis
     Route: 065
  102. CALCIUM [Suspect]
     Active Substance: CALCIUM
     Indication: Product used for unknown indication
     Route: 065
  103. CELECOXIB [Suspect]
     Active Substance: CELECOXIB
     Indication: Rheumatoid arthritis
     Route: 058
  104. CELECOXIB [Suspect]
     Active Substance: CELECOXIB
     Route: 048
  105. CELECOXIB [Suspect]
     Active Substance: CELECOXIB
     Route: 065
  106. CELECOXIB [Suspect]
     Active Substance: CELECOXIB
     Route: 065
  107. CETIRIZINE HYDROCHLORIDE AND PSEUDOEPHEDRINE HYDROCHLORIDE [Suspect]
     Active Substance: CETIRIZINE HYDROCHLORIDE\PSEUDOEPHEDRINE HYDROCHLORIDE
     Indication: Rheumatoid arthritis
     Route: 065
  108. DICLOFENAC SODIUM [Suspect]
     Active Substance: DICLOFENAC SODIUM
     Indication: Product used for unknown indication
     Route: 065
  109. LEVOCETIRIZINE [Suspect]
     Active Substance: LEVOCETIRIZINE
     Indication: Product used for unknown indication
     Route: 065
  110. NAPROXEN [Suspect]
     Active Substance: NAPROXEN
     Indication: Product used for unknown indication
     Route: 065
  111. NAPROXEN [Suspect]
     Active Substance: NAPROXEN
     Dosage: 1000 MILLIGRAM, QD
     Route: 065
  112. ACETAMINOPHEN [Suspect]
     Active Substance: ACETAMINOPHEN
     Indication: Product used for unknown indication
     Route: 065
  113. ACETAMINOPHEN [Suspect]
     Active Substance: ACETAMINOPHEN
     Route: 065
  114. NAPROXEN SODIUM [Suspect]
     Active Substance: NAPROXEN SODIUM
     Indication: Rheumatoid arthritis
     Route: 065
  115. APREMILAST [Suspect]
     Active Substance: APREMILAST
     Indication: Product used for unknown indication
     Route: 065
  116. AZATHIOPRINE [Suspect]
     Active Substance: AZATHIOPRINE
     Indication: Product used for unknown indication
     Route: 065
  117. CALCIUM CARBONATE [Suspect]
     Active Substance: CALCIUM CARBONATE
     Indication: Product used for unknown indication
     Route: 016
  118. CALCIUM CITRATE [Suspect]
     Active Substance: CALCIUM CITRATE
     Indication: Product used for unknown indication
     Route: 065
  119. CALCIUM GLUBIONATE [Suspect]
     Active Substance: CALCIUM GLUBIONATE
     Indication: Product used for unknown indication
     Route: 065
  120. CHLORHEXIDINE GLUCONATE [Suspect]
     Active Substance: CHLORHEXIDINE GLUCONATE
     Indication: Product used for unknown indication
     Route: 002
  121. ISOPROPANOLAMINE [Suspect]
     Active Substance: ISOPROPANOLAMINE
     Indication: Product used for unknown indication
     Route: 065
  122. CLONIDINE HYDROCHLORIDE [Suspect]
     Active Substance: CLONIDINE HYDROCHLORIDE
     Indication: Product used for unknown indication
     Route: 065
  123. DICLOFENAC POTASSIUM [Suspect]
     Active Substance: DICLOFENAC POTASSIUM
     Indication: Product used for unknown indication
     Route: 065
  124. DICLOFENAC POTASSIUM [Suspect]
     Active Substance: DICLOFENAC POTASSIUM
     Dosage: 5 GRAM, QD
     Route: 065
  125. DICLOFENAC POTASSIUM [Suspect]
     Active Substance: DICLOFENAC POTASSIUM
     Route: 065
  126. DICLOFENAC POTASSIUM [Suspect]
     Active Substance: DICLOFENAC POTASSIUM
     Route: 065
  127. DILTIAZEM HYDROCHLORIDE [Suspect]
     Active Substance: DILTIAZEM HYDROCHLORIDE
     Indication: Product used for unknown indication
     Route: 040
  128. DIPHENHYDRAMINE HYDROCHLORIDE [Suspect]
     Active Substance: DIPHENHYDRAMINE HYDROCHLORIDE
     Indication: Product used for unknown indication
     Route: 065
  129. DOXYCYCLINE HYCLATE [Suspect]
     Active Substance: DOXYCYCLINE HYCLATE
     Indication: Product used for unknown indication
     Route: 065
  130. FRAMYCETIN SULFATE [Suspect]
     Active Substance: FRAMYCETIN SULFATE
     Indication: Product used for unknown indication
     Route: 065
  131. GRAMICIDIN [Suspect]
     Active Substance: GRAMICIDIN
     Indication: Product used for unknown indication
     Route: 065
  132. HYDROCORTISONE SODIUM SUCCINATE [Suspect]
     Active Substance: HYDROCORTISONE SODIUM SUCCINATE
     Indication: Product used for unknown indication
     Route: 048
  133. HYDROCORTISONE SODIUM SUCCINATE [Suspect]
     Active Substance: HYDROCORTISONE SODIUM SUCCINATE
     Route: 058
  134. HYDROXYCHLOROQUINE [Suspect]
     Active Substance: HYDROXYCHLOROQUINE
     Indication: Product used for unknown indication
     Dosage: 40 MILLIGRAM, QD
     Route: 048
  135. HYDROXYCHLOROQUINE [Suspect]
     Active Substance: HYDROXYCHLOROQUINE
     Dosage: 400 MILLIGRAM, QD
     Route: 058
  136. HYDROXYCHLOROQUINE [Suspect]
     Active Substance: HYDROXYCHLOROQUINE
     Dosage: 5 MILLIGRAM
     Route: 048
  137. HYDROXYCHLOROQUINE [Suspect]
     Active Substance: HYDROXYCHLOROQUINE
     Route: 048
  138. ISOPROPYL ALCOHOL [Suspect]
     Active Substance: ISOPROPYL ALCOHOL
     Indication: Product used for unknown indication
     Route: 048
  139. LYRICA [Suspect]
     Active Substance: PREGABALIN
     Indication: Product used for unknown indication
     Route: 065
  140. MESALAMINE [Suspect]
     Active Substance: MESALAMINE
     Indication: Product used for unknown indication
     Route: 065
  141. METHYLPREDNISOLONE SODIUM SUCCINATE [Suspect]
     Active Substance: METHYLPREDNISOLONE SODIUM SUCCINATE
     Indication: Product used for unknown indication
     Route: 048
  142. MORPHINE SULFATE [Suspect]
     Active Substance: MORPHINE SULFATE
     Indication: Product used for unknown indication
     Route: 065
  143. XELJANZ [Suspect]
     Active Substance: TOFACITINIB CITRATE
     Indication: Product used for unknown indication
     Dosage: 10 MILLIGRAM, QD
     Route: 048
  144. XELJANZ [Suspect]
     Active Substance: TOFACITINIB CITRATE
     Route: 065
  145. VITAMIN D3 [Suspect]
     Active Substance: CHOLECALCIFEROL
     Indication: Product used for unknown indication
     Route: 058
  146. VITAMIN D3 [Suspect]
     Active Substance: CHOLECALCIFEROL
     Route: 016
  147. VITAMIN D3 [Suspect]
     Active Substance: CHOLECALCIFEROL
     Route: 065
  148. TYROTHRICIN [Suspect]
     Active Substance: TYROTHRICIN
     Indication: Product used for unknown indication
     Route: 048
  149. TRICLOSAN [Suspect]
     Active Substance: TRICLOSAN
     Indication: Product used for unknown indication
     Route: 065
  150. TRIAMCINOLONE ACETONIDE [Suspect]
     Active Substance: TRIAMCINOLONE ACETONIDE
     Indication: Product used for unknown indication
     Route: 035
  151. TRAMADOL HYDROCHLORIDE [Suspect]
     Active Substance: TRAMADOL HYDROCHLORIDE
     Indication: Product used for unknown indication
     Route: 065
  152. MYCOPHENOLATE MOFETIL [Suspect]
     Active Substance: MYCOPHENOLATE MOFETIL
     Indication: Product used for unknown indication
     Route: 065
  153. NITROFURAZONE [Suspect]
     Active Substance: NITROFURAZONE
     Indication: Product used for unknown indication
     Route: 048
  154. NITROFURAZONE [Suspect]
     Active Substance: NITROFURAZONE
     Route: 048
  155. OXYCODONE [Suspect]
     Active Substance: OXYCODONE
     Indication: Product used for unknown indication
     Route: 065
  156. OXYCODONE TEREPHTHALATE [Suspect]
     Active Substance: OXYCODONE TEREPHTHALATE
     Indication: Product used for unknown indication
     Route: 065
  157. PARA-AMINOSALICYLIC ACID [Suspect]
     Active Substance: AMINOSALICYLIC ACID
     Indication: Product used for unknown indication
     Route: 065
  158. PHTHALYLSULFATHIAZOLE [Suspect]
     Active Substance: PHTHALYLSULFATHIAZOLE
     Indication: Product used for unknown indication
     Dosage: 2000 MILLIGRAM, QD
     Route: 048
  159. PHTHALYLSULFATHIAZOLE [Suspect]
     Active Substance: PHTHALYLSULFATHIAZOLE
     Dosage: 1000 MILLIGRAM, QD
     Route: 048
  160. PHTHALYLSULFATHIAZOLE [Suspect]
     Active Substance: PHTHALYLSULFATHIAZOLE
     Dosage: 400 MILLIGRAM, QD
     Route: 065
  161. PHTHALYLSULFATHIAZOLE [Suspect]
     Active Substance: PHTHALYLSULFATHIAZOLE
     Route: 016
  162. PHTHALYLSULFATHIAZOLE [Suspect]
     Active Substance: PHTHALYLSULFATHIAZOLE
     Route: 048
  163. PHTHALYLSULFATHIAZOLE [Suspect]
     Active Substance: PHTHALYLSULFATHIAZOLE
     Dosage: 2000 MILLIGRAM, QD
     Route: 058
  164. QUETIAPINE FUMARATE [Suspect]
     Active Substance: QUETIAPINE FUMARATE
     Indication: Product used for unknown indication
     Route: 065
  165. SALICYLIC ACID [Suspect]
     Active Substance: SALICYLIC ACID
     Indication: Product used for unknown indication
     Route: 065
  166. SODIUM FLUORIDE [Suspect]
     Active Substance: SODIUM FLUORIDE
     Indication: Product used for unknown indication
     Route: 065
  167. STELARA [Suspect]
     Active Substance: USTEKINUMAB
     Indication: Product used for unknown indication
     Route: 040
  168. SULFAMETHOXAZOLE AND TRIMETHOPRIM [Suspect]
     Active Substance: SULFAMETHOXAZOLE\TRIMETHOPRIM
     Indication: Product used for unknown indication
     Route: 067
  169. THYMOL [Suspect]
     Active Substance: THYMOL
     Indication: Product used for unknown indication
     Route: 048
  170. THYMOL [Suspect]
     Active Substance: THYMOL
     Route: 048
  171. TOFACITINIB CITRATE [Suspect]
     Active Substance: TOFACITINIB CITRATE
     Indication: Product used for unknown indication
     Dosage: 10 MILLIGRAM, QD
     Route: 065
  172. DICLOFENAC [Concomitant]
     Active Substance: DICLOFENAC
     Indication: Product used for unknown indication
     Route: 065
  173. CALCIUM GLUCONATE [Concomitant]
     Active Substance: CALCIUM GLUCONATE
     Indication: Product used for unknown indication
     Route: 065
  174. SULFASALAZINE [Concomitant]
     Active Substance: SULFASALAZINE
     Indication: Product used for unknown indication
     Route: 065
  175. PANTOPRAZOLE [Concomitant]
     Active Substance: PANTOPRAZOLE
     Indication: Product used for unknown indication
     Route: 065
  176. NAPROSYN [Concomitant]
     Active Substance: NAPROXEN
     Indication: Product used for unknown indication
     Route: 065

REACTIONS (64)
  - Prescribed underdose [Fatal]
  - Type 2 diabetes mellitus [Fatal]
  - Upper respiratory tract infection [Fatal]
  - Urticaria [Fatal]
  - Visual impairment [Fatal]
  - Vomiting [Fatal]
  - Walking aid user [Fatal]
  - Weight decreased [Fatal]
  - Weight increased [Fatal]
  - Wheezing [Fatal]
  - Wound [Fatal]
  - Wound infection [Fatal]
  - Abdominal discomfort [Recovered/Resolved]
  - Adjustment disorder with depressed mood [Recovered/Resolved]
  - Alopecia [Recovered/Resolved]
  - Amnesia [Recovered/Resolved]
  - Contraindicated product administered [Not Recovered/Not Resolved]
  - Delirium [Recovered/Resolved]
  - Diabetes mellitus [Recovered/Resolved]
  - Dislocation of vertebra [Recovered/Resolved]
  - Drug hypersensitivity [Recovered/Resolved]
  - Drug intolerance [Not Recovered/Not Resolved]
  - Drug tolerance decreased [Recovered/Resolved]
  - Gait disturbance [Recovered/Resolved]
  - Glossodynia [Not Recovered/Not Resolved]
  - Grip strength decreased [Recovered/Resolved]
  - Hip arthroplasty [Not Recovered/Not Resolved]
  - Knee arthroplasty [Not Recovered/Not Resolved]
  - Mobility decreased [Recovered/Resolved]
  - Muscular weakness [Recovered/Resolved]
  - Pain in extremity [Recovered/Resolved]
  - Pemphigus [Not Recovered/Not Resolved]
  - Product use issue [Not Recovered/Not Resolved]
  - Rheumatoid arthritis [Not Recovered/Not Resolved]
  - Seronegative arthritis [Recovered/Resolved]
  - Spinal fusion surgery [Recovered/Resolved]
  - Therapeutic product effect decreased [Recovered/Resolved]
  - Pericarditis [Recovered/Resolved]
  - Product use in unapproved indication [Recovered/Resolved]
  - Pain [Not Recovered/Not Resolved]
  - Hypersensitivity [Recovered/Resolved]
  - Peripheral swelling [Recovered/Resolved]
  - Maternal exposure during pregnancy [Not Recovered/Not Resolved]
  - Arthropathy [Not Recovered/Not Resolved]
  - Treatment failure [Recovered/Resolved]
  - Infection [Recovered/Resolved]
  - Fatigue [Not Recovered/Not Resolved]
  - Hand deformity [Not Recovered/Not Resolved]
  - Rash [Recovered/Resolved]
  - Drug ineffective [Not Recovered/Not Resolved]
  - Swelling [Not Recovered/Not Resolved]
  - Condition aggravated [Not Recovered/Not Resolved]
  - Diarrhoea [Not Recovered/Not Resolved]
  - Dizziness [Not Recovered/Not Resolved]
  - Fibromyalgia [Not Recovered/Not Resolved]
  - Liver injury [Not Recovered/Not Resolved]
  - Nausea [Not Recovered/Not Resolved]
  - Oedema [Not Recovered/Not Resolved]
  - Prescribed overdose [Not Recovered/Not Resolved]
  - Psoriatic arthropathy [Not Recovered/Not Resolved]
  - Off label use [Not Recovered/Not Resolved]
  - Synovitis [Not Recovered/Not Resolved]
  - Systemic lupus erythematosus [Not Recovered/Not Resolved]
  - Underdose [Not Recovered/Not Resolved]
